FAERS Safety Report 8555923 (Version 6)
Quarter: 2013Q1

REPORT INFORMATION
  Report Type: Report from Study
  Country: FR (occurrence: FR)
  Receive Date: 20120510
  Receipt Date: 20130102
  Transmission Date: 20140127
  Serious: Yes (Hospitalization, Congenital Anomaly)
  Sender: FDA-Public Use
  Company Number: FR-ROCHE-1067105

PATIENT
  Age: 0 Year
  Sex: Female
  Weight: .79 kg

DRUGS (1)
  1. BEVACIZUMAB [Suspect]
     Indication: PRODUCT USED FOR UNKNOWN INDICATION
     Dosage: LAST DOSE PRIOR TO SAE 24/JUN/2010
     Route: 064
     Dates: start: 20090625, end: 20100624

REACTIONS (2)
  - Foetal growth restriction [Recovered/Resolved]
  - Maternal exposure timing unspecified [Unknown]
